FAERS Safety Report 5736721-8 (Version None)
Quarter: 2008Q2

REPORT INFORMATION
  Report Type: 
  Country: None (occurrence: None)
  Receive Date: 20080513
  Receipt Date: 20080503
  Transmission Date: 20081010
  Serious: Yes (Other)
  Sender: FDA-Public Use
  Company Number: US-PFIZER INC-2008039757

PATIENT
  Sex: Female
  Weight: 72.6 kg

DRUGS (2)
  1. CHANTIX [Suspect]
     Indication: SMOKING CESSATION THERAPY
     Route: 048
     Dates: start: 20080424, end: 20080503
  2. CELEXA [Concomitant]
     Route: 048

REACTIONS (5)
  - AMNESIA [None]
  - CRYING [None]
  - ILL-DEFINED DISORDER [None]
  - MENTAL DISORDER [None]
  - PERFORMANCE STATUS DECREASED [None]
